FAERS Safety Report 18873010 (Version 1)
Quarter: 2021Q1

REPORT INFORMATION
  Report Type: Spontaneous
  Country: IN (occurrence: IN)
  Receive Date: 20210210
  Receipt Date: 20210210
  Transmission Date: 20210420
  Serious: Yes (Hospitalization)
  Sender: FDA-Public Use
  Company Number: IN-MYLANLABS-2021M1007743

PATIENT
  Age: 11 Year
  Sex: Male

DRUGS (21)
  1. DOXORUBICIN [Suspect]
     Active Substance: DOXORUBICIN
     Indication: ACUTE LYMPHOCYTIC LEUKAEMIA
     Dosage: AS PER THE INDIAN CHILDHOOD...
     Route: 065
     Dates: start: 2016
  2. METHOTREXATE. [Suspect]
     Active Substance: METHOTREXATE
     Indication: ACUTE LYMPHOCYTIC LEUKAEMIA
     Dosage: AS PER THE INDIAN CHILDHOOD...
     Route: 037
     Dates: start: 2016
  3. CYTARABINE. [Suspect]
     Active Substance: CYTARABINE
     Indication: ACUTE LYMPHOCYTIC LEUKAEMIA
     Dosage: AS PER THE INDIAN CHILDHOOD..
     Route: 065
     Dates: start: 2016
  4. METHOTREXATE. [Suspect]
     Active Substance: METHOTREXATE
     Indication: ACUTE LYMPHOCYTIC LEUKAEMIA
     Dosage: AS PER THE UK ALL...
     Route: 065
  5. CYCLOPHOSPHAMIDE. [Suspect]
     Active Substance: CYCLOPHOSPHAMIDE
     Dosage: AS PER THE UK ALL R3...
     Route: 065
  6. PREDNISOLONE. [Suspect]
     Active Substance: PREDNISOLONE
     Dosage: FOLLOWING RELAPSE OF ALL
     Route: 048
  7. VINCRISTINE [Suspect]
     Active Substance: VINCRISTINE
     Dosage: AS PER THE UK ALL..
     Route: 065
  8. MITOXANTRONE [Suspect]
     Active Substance: MITOXANTRONE HYDROCHLORIDE
     Indication: ACUTE LYMPHOCYTIC LEUKAEMIA RECURRENT
     Dosage: AS PER THE UK ALL R3...
     Route: 065
  9. FUROSEMIDE. [Suspect]
     Active Substance: FUROSEMIDE
     Indication: DIURETIC THERAPY
     Route: 065
  10. PREDNISOLONE. [Suspect]
     Active Substance: PREDNISOLONE
     Indication: STEROID THERAPY
     Dosage: 60 MILLIGRAM/SQ. METER, QD
     Route: 065
     Dates: start: 2016
  11. L?ASPARAGINASE [Suspect]
     Active Substance: ASPARAGINASE
     Dosage: AS PER THE UK ALL...
     Route: 065
  12. PREDNISOLONE. [Suspect]
     Active Substance: PREDNISOLONE
     Indication: ACUTE LYMPHOCYTIC LEUKAEMIA
     Dosage: AS PER THE INDIAN...
     Route: 065
     Dates: start: 2016
  13. DEXAMETHASONE. [Suspect]
     Active Substance: DEXAMETHASONE
     Dosage: AS PER THE UK ALL...
     Route: 065
  14. CYCLOPHOSPHAMIDE. [Suspect]
     Active Substance: CYCLOPHOSPHAMIDE
     Indication: ACUTE LYMPHOCYTIC LEUKAEMIA
     Dosage: AS PER THE INDIAN CHILDHOOD...
     Route: 065
     Dates: start: 2016
  15. PAMIDRONATE [Suspect]
     Active Substance: PAMIDRONATE DISODIUM
     Indication: HYPERCALCAEMIA
     Dosage: 1 MILLIGRAM/KILOGRAM
     Route: 042
     Dates: start: 2016
  16. PAMIDRONATE [Suspect]
     Active Substance: PAMIDRONATE DISODIUM
     Dosage: 1 MILLIGRAM/KILOGRAM (SINGLE DOSE...
     Route: 042
  17. DEXAMETHASONE. [Suspect]
     Active Substance: DEXAMETHASONE
     Indication: ACUTE LYMPHOCYTIC LEUKAEMIA
     Dosage: AS PER THE INDIAN CHILDHOOD..
     Route: 065
     Dates: start: 2016
  18. VINCRISTINE [Suspect]
     Active Substance: VINCRISTINE
     Indication: ACUTE LYMPHOCYTIC LEUKAEMIA
     Dosage: AS PER THE INDIAN CHILDHOOD...
     Route: 065
     Dates: start: 2016
  19. CYTARABINE. [Suspect]
     Active Substance: CYTARABINE
     Dosage: AS PER THE UK ALL...
     Route: 065
  20. DAUNORUBICIN [Suspect]
     Active Substance: DAUNORUBICIN
     Indication: ACUTE LYMPHOCYTIC LEUKAEMIA
     Dosage: AS PER THE INDIAN CHILDHOOD COLLABORATIVE LEUKAEMIA PROTOCOL (ICICLE)
     Route: 065
     Dates: start: 2016
  21. L?ASPARAGINASE [Suspect]
     Active Substance: ASPARAGINASE
     Indication: ACUTE LYMPHOCYTIC LEUKAEMIA
     Dosage: AS PER THE INDIAN CHILDHOOD..
     Route: 065
     Dates: start: 2016

REACTIONS (4)
  - Hypomagnesaemia [Unknown]
  - Renal tubular disorder [Unknown]
  - Renal failure [Unknown]
  - Hypocalcaemia [Unknown]

NARRATIVE: CASE EVENT DATE: 2016
